FAERS Safety Report 5374790-8 (Version None)
Quarter: 2007Q2

REPORT INFORMATION
  Report Type: 
  Country: None (occurrence: None)
  Receive Date: 20070629
  Receipt Date: 20070619
  Transmission Date: 20071010
  Serious: Yes (Hospitalization)
  Sender: FDA-Public Use
  Company Number: FR-ROCHE-503489

PATIENT
  Age: 10 Year
  Sex: Male
  Weight: 33 kg

DRUGS (6)
  1. ROCEPHIN [Suspect]
     Indication: DRUG USE FOR UNKNOWN INDICATION
     Route: 042
     Dates: start: 20070408, end: 20070417
  2. BACTRIM [Suspect]
     Indication: DRUG USE FOR UNKNOWN INDICATION
     Dosage: THREE DOSES QD.
     Route: 048
     Dates: start: 20070414, end: 20070418
  3. BACTRIM [Suspect]
     Dosage: DOSAGE REPORTED AS MID-DOSE.
     Route: 048
     Dates: start: 20070312
  4. METHOTREXATE [Concomitant]
     Indication: ACUTE LEUKAEMIA
     Dosage: THE PATIENT RECEIVED A SECOND INJECTION ON 22 APRIL 2007. DOSAGE REGIMEN REPORTED AS 15MG/CYCLE.
     Route: 037
     Dates: start: 20070416
  5. ARACYTINE [Concomitant]
     Indication: ACUTE LEUKAEMIA
     Dosage: THE PATIENT RECEIVED A SECOND INJECTION ON 22 APRIL 2007. THE DOSAGE REGIMEN WAS REPORTED AS 30MG/C+
     Route: 037
     Dates: start: 20070416
  6. HYDROCORTISONE HEMISUCCINATE [Concomitant]
     Dosage: THE PATIENT RECEIVED A SECOND INJECTION ON 22 APRIL 2007.
     Dates: start: 20070416

REACTIONS (3)
  - ALANINE AMINOTRANSFERASE INCREASED [None]
  - ASPARTATE AMINOTRANSFERASE INCREASED [None]
  - GAMMA-GLUTAMYLTRANSFERASE INCREASED [None]
